FAERS Safety Report 23922788 (Version 3)
Quarter: 2024Q2

REPORT INFORMATION
  Report Type: Spontaneous
  Country: CA (occurrence: None)
  Receive Date: 20240531
  Receipt Date: 20240618
  Transmission Date: 20240715
  Serious: Yes (Disabling, Other)
  Sender: FDA-Public Use
  Company Number: 2024A121611

PATIENT
  Age: 370 Month
  Sex: Female

DRUGS (1)
  1. FASENRA [Suspect]
     Active Substance: BENRALIZUMAB
     Indication: Asthma
     Route: 058
     Dates: start: 2020

REACTIONS (2)
  - Infectious mononucleosis [Recovering/Resolving]
  - Thrombocytopenia [Unknown]
